FAERS Safety Report 6801487-7 (Version None)
Quarter: 2010Q2

REPORT INFORMATION
  Report Type: 
  Country: None (occurrence: None)
  Receive Date: 20100629
  Receipt Date: 20100623
  Transmission Date: 20101027
  Serious: Yes (Other)
  Sender: FDA-Public Use
  Company Number: DE-ROCHE-711733

PATIENT
  Age: 47 Year
  Sex: Female

DRUGS (1)
  1. PEGASYS [Suspect]
     Indication: HEPATITIS C
     Dosage: TREATMENT FOR 4 WEEKS
     Route: 065

REACTIONS (2)
  - AFFECT LABILITY [None]
  - EYE DISORDER [None]
